FAERS Safety Report 12712266 (Version 1)
Quarter: 2016Q3

REPORT INFORMATION
  Report Type: Spontaneous
  Country: JP (occurrence: JP)
  Receive Date: 20160902
  Receipt Date: 20160902
  Transmission Date: 20161109
  Serious: Yes (Life-Threatening)
  Sender: FDA-Public Use
  Company Number: JP-HQ SPECIALTY-JP-2016INT000865

PATIENT
  Age: 69 Year
  Sex: Female

DRUGS (3)
  1. MITOTANE [Suspect]
     Active Substance: MITOTANE
     Indication: HYPERADRENOCORTICISM
     Dosage: 3 G, QD
  2. CISPLATIN. [Suspect]
     Active Substance: CISPLATIN
     Indication: NEUROENDOCRINE CARCINOMA METASTATIC
     Dosage: 60 MG/M2, DAY 1 (28 DAY CYCLE)
  3. IRINOTECAN [Suspect]
     Active Substance: IRINOTECAN
     Indication: NEUROENDOCRINE CARCINOMA METASTATIC
     Dosage: 60 MG/M2, DAYS 1, 8 AND 15 (28 DAY CYCLE)

REACTIONS (1)
  - Haematotoxicity [Unknown]
